FAERS Safety Report 8488819-1 (Version None)
Quarter: 2012Q2

REPORT INFORMATION
  Report Type: 
  Country: None (occurrence: None)
  Receive Date: 20120626
  Receipt Date: 20120610
  Transmission Date: 20120825
  Serious: Yes (Hospitalization)
  Sender: FDA-Public Use
  Company Number: GB-DEXPHARM-20120687

PATIENT
  Age: 76 Year
  Sex: Male

DRUGS (4)
  1. GLUCOSAMINE [Concomitant]
  2. CINNARIAZINE [Concomitant]
  3. SIMVASTATIN [Suspect]
     Indication: HYPERCHOLESTEROLAEMIA
     Route: 048
  4. SILDENAFIL [Concomitant]

REACTIONS (3)
  - RHABDOMYOLYSIS [None]
  - MYOPATHY [None]
  - RENAL FAILURE ACUTE [None]
